FAERS Safety Report 8211440-7 (Version None)
Quarter: 2012Q1

REPORT INFORMATION
  Report Type: 
  Country: None (occurrence: None)
  Receive Date: 20120315
  Receipt Date: 20120314
  Transmission Date: 20120608
  Serious: Yes (Death)
  Sender: FDA-Public Use
  Company Number: PL-NAPPMUNDI-DEU-2012-0008723

PATIENT
  Age: 80 Year
  Sex: Male
  Weight: 65 kg

DRUGS (3)
  1. APAP TAB [Suspect]
     Indication: CANCER PAIN
     Dosage: 2000 MG, DAILY
     Route: 048
     Dates: start: 20110801, end: 20111208
  2. OXYCODONE HCL [Suspect]
     Indication: CANCER PAIN
     Dosage: 80 MG, DAILY
     Route: 048
     Dates: start: 20111205, end: 20111208
  3. MORPHINE SULFATE [Suspect]
     Indication: CANCER PAIN
     Dosage: 40 MG, DAILY
     Route: 048
     Dates: start: 20111205, end: 20111208

REACTIONS (1)
  - PROSTATE CANCER [None]
